FAERS Safety Report 5323832-4 (Version None)
Quarter: 2007Q2

REPORT INFORMATION
  Report Type: 
  Country: None (occurrence: None)
  Receive Date: 20070514
  Receipt Date: 20070503
  Transmission Date: 20071010
  Serious: Yes (Other)
  Sender: FDA-Public Use
  Company Number: B0470281A

PATIENT
  Age: 55 Year
  Sex: Female

DRUGS (2)
  1. AMOXICILLIN [Suspect]
     Route: 065
  2. SERTRALINE [Suspect]
     Route: 065

REACTIONS (4)
  - ALANINE AMINOTRANSFERASE INCREASED [None]
  - BLOOD ALKALINE PHOSPHATASE INCREASED [None]
  - HEPATOCELLULAR DAMAGE [None]
  - LIVER INJURY [None]
